FAERS Safety Report 8581767-8 (Version None)
Quarter: 2012Q3

REPORT INFORMATION
  Report Type: 
  Country: None (occurrence: None)
  Receive Date: 20120801
  Receipt Date: 20120801
  Transmission Date: 20120928
  Serious: Yes (Disabling)
  Sender: FDA-Public Use
  Company Number: None

PATIENT
  Age: 50 Year
  Sex: Female
  Weight: 104.3273 kg

DRUGS (1)
  1. ANASTROZOLE [Suspect]
     Indication: BREAST CANCER
     Dosage: 1 TABLET 1X DAY PO
     Route: 048
     Dates: start: 20120131, end: 20120705

REACTIONS (7)
  - BONE PAIN [None]
  - FEELING ABNORMAL [None]
  - PELVIC PAIN [None]
  - SPINAL PAIN [None]
  - FALL [None]
  - ARTHRALGIA [None]
  - IMPAIRED WORK ABILITY [None]
